FAERS Safety Report 15156984 (Version 1)
Quarter: 2018Q3

REPORT INFORMATION
  Report Type: Spontaneous
  Country: US (occurrence: US)
  Receive Date: 20180718
  Receipt Date: 20180718
  Transmission Date: 20181010
  Serious: No
  Sender: FDA-Public Use
  Company Number: US-LUPIN PHARMACEUTICALS INC.-2017-03837

PATIENT
  Sex: Male

DRUGS (1)
  1. GAVILYTE ? C [Suspect]
     Active Substance: POLYETHYLENE GLYCOL 3350\POTASSIUM CHLORIDE\SODIUM BICARBONATE\SODIUM CHLORIDE\SODIUM SULFATE ANHYDROUS
     Indication: BOWEL PREPARATION
     Dosage: 4 L, UNK
     Route: 065
     Dates: start: 20170705

REACTIONS (3)
  - Chills [Recovered/Resolved]
  - Therapeutic response delayed [Unknown]
  - Burning sensation [Unknown]

NARRATIVE: CASE EVENT DATE: 20170705
